FAERS Safety Report 21792958 (Version 1)
Quarter: 2022Q4

REPORT INFORMATION
  Report Type: Spontaneous
  Country: BE (occurrence: BE)
  Receive Date: 20221229
  Receipt Date: 20221229
  Transmission Date: 20230113
  Serious: No
  Sender: FDA-Public Use
  Company Number: BE-ALKEM LABORATORIES LIMITED-BE-ALKEM-2022-11939

PATIENT
  Age: 9 Year
  Sex: Female

DRUGS (1)
  1. SIROLIMUS [Suspect]
     Active Substance: SIROLIMUS
     Indication: Malformation venous
     Dosage: 0.8 MG/METER SQUARE BODY SURFACE AREA, (TWICE-A-DAY, USING LIQUID SOLUTIONS), BID
     Route: 048

REACTIONS (1)
  - Fatigue [Unknown]
